FAERS Safety Report 11297356 (Version 1)
Quarter: 2015Q3

REPORT INFORMATION
  Report Type: Spontaneous
  Country: US (occurrence: US)
  Receive Date: 20150722
  Receipt Date: 20150722
  Transmission Date: 20151125
  Serious: No
  Sender: FDA-Public Use
  Company Number: US-ELI_LILLY_AND_COMPANY-US200804003587

PATIENT
  Sex: Female

DRUGS (2)
  1. HUMATROPE [Suspect]
     Active Substance: SOMATROPIN
     Dosage: 4 MG, UNK
     Route: 058
     Dates: end: 20080409
  2. HUMATROPE [Suspect]
     Active Substance: SOMATROPIN
     Dosage: 4.6 MG, UNK
     Route: 058
     Dates: start: 200802

REACTIONS (2)
  - Contusion [Unknown]
  - Arthralgia [Unknown]

NARRATIVE: CASE EVENT DATE: 2008
